FAERS Safety Report 12731037 (Version 1)
Quarter: 2016Q3

REPORT INFORMATION
  Report Type: Spontaneous
  Country: NO (occurrence: NO)
  Receive Date: 20160912
  Receipt Date: 20160912
  Transmission Date: 20161109
  Serious: Yes (Death)
  Sender: FDA-Public Use
  Company Number: NO-ACCORD-043927

PATIENT
  Age: 91 Year
  Sex: Female

DRUGS (6)
  1. SOMAC [Concomitant]
     Active Substance: PANTOPRAZOLE SODIUM
  2. CALCIGRAN FORTE [Concomitant]
     Indication: OSTEOPOROSIS
     Dosage: DF: 1000 MG CA/800 IE COLECALCIFEROL
  3. FOLSYRE NAF [Concomitant]
     Active Substance: FOLIC ACID
     Dosage: 1 MG PER DAY FOR 6 DAYS OF THE WEEK
  4. PARACET [Concomitant]
     Active Substance: ACETAMINOPHEN
     Dosage: 1 AS NECESSARY, NOT MORE THAN 3 G PER 24 HRS
  5. METHOTREXATE. [Suspect]
     Active Substance: METHOTREXATE
     Indication: ARTHRITIS
     Dosage: USED FOR AT LEAST 10 YEARS
  6. FURADANTIN [Concomitant]
     Active Substance: NITROFURANTOIN
     Indication: PROPHYLAXIS URINARY TRACT INFECTION
     Dates: start: 201601

REACTIONS (2)
  - Pancytopenia [Fatal]
  - Pneumonia [Fatal]

NARRATIVE: CASE EVENT DATE: 20160805
